FAERS Safety Report 7879759-7 (Version None)
Quarter: 2011Q4

REPORT INFORMATION
  Report Type: 
  Country: None (occurrence: None)
  Receive Date: 20111101
  Receipt Date: 20111020
  Transmission Date: 20120403
  Serious: Yes (Hospitalization)
  Sender: FDA-Public Use
  Company Number: IL-ELI_LILLY_AND_COMPANY-IL201110006573

PATIENT
  Age: 73 Year
  Sex: Male
  Weight: 57 kg

DRUGS (2)
  1. GEMCITABINE HYDROCHLORIDE [Suspect]
     Indication: ADENOCARCINOMA PANCREAS
     Dosage: 1000 MG/M2, OTHER (OVER 30 MINUTES, WEEKS 1-3, 1 IN 1 WK)
     Route: 042
     Dates: start: 20110817, end: 20110831
  2. TARCEVA [Suspect]
     Indication: ADENOCARCINOMA PANCREAS
     Dosage: 100 MG, QD
     Route: 048
     Dates: start: 20110817, end: 20110817

REACTIONS (3)
  - THERMAL BURN [None]
  - CELLULITIS [None]
  - OEDEMA PERIPHERAL [None]
